FAERS Safety Report 19925242 (Version 2)
Quarter: 2021Q4

REPORT INFORMATION
  Report Type: Spontaneous
  Country: AR (occurrence: AR)
  Receive Date: 20211006
  Receipt Date: 20211019
  Transmission Date: 20220303
  Serious: Yes (Life-Threatening, Hospitalization, Other)
  Sender: FDA-Public Use
  Company Number: AR-BOEHRINGERINGELHEIM-2021-BI-130881

PATIENT
  Age: 71 Year
  Sex: Male

DRUGS (1)
  1. PRADAXA [Suspect]
     Active Substance: DABIGATRAN ETEXILATE MESYLATE
     Indication: Product used for unknown indication
     Dosage: 220MG

REACTIONS (2)
  - Upper gastrointestinal haemorrhage [Unknown]
  - Hypovolaemic shock [Not Recovered/Not Resolved]

NARRATIVE: CASE EVENT DATE: 20211005
